FAERS Safety Report 9465718 (Version 2)
Quarter: 2013Q4

REPORT INFORMATION
  Report Type: Spontaneous
  Country: FR (occurrence: FR)
  Receive Date: 20130820
  Receipt Date: 20131204
  Transmission Date: 20140711
  Serious: Yes (Hospitalization)
  Sender: FDA-Public Use
  Company Number: FR-JNJFOC-20130805717

PATIENT
  Age: 84 Year
  Sex: Male

DRUGS (12)
  1. RISPERDAL [Suspect]
     Indication: ABNORMAL BEHAVIOUR
     Route: 048
     Dates: start: 20130619, end: 20130711
  2. RISPERDAL [Suspect]
     Indication: ABNORMAL BEHAVIOUR
     Route: 048
     Dates: start: 20130711, end: 20130731
  3. LYSANXIA [Suspect]
     Indication: ABNORMAL BEHAVIOUR
     Dosage: 15 MG/ML 30 DROPS PER DAY
     Route: 048
     Dates: start: 20130720, end: 2013
  4. TIAPRIDAL [Concomitant]
     Indication: ABNORMAL BEHAVIOUR
     Route: 065
  5. TIAPRIDAL [Concomitant]
     Indication: ABNORMAL BEHAVIOUR
     Route: 065
     Dates: start: 20130513, end: 20130619
  6. MATRIFEN [Concomitant]
     Indication: PAIN
     Route: 065
     Dates: start: 20130521, end: 20130618
  7. BISOCE [Concomitant]
     Route: 065
  8. DOLIPRANE [Concomitant]
     Route: 065
  9. IMOVANE [Concomitant]
     Route: 065
  10. LASILIX [Concomitant]
     Dosage: 40
     Route: 065
  11. UVEDOSE [Concomitant]
     Route: 065
  12. OFLOCET [Concomitant]
     Indication: URINARY TRACT INFECTION
     Route: 065
     Dates: start: 20130315, end: 20130324

REACTIONS (1)
  - Pemphigoid [Recovered/Resolved]
